FAERS Safety Report 6850084-6 (Version None)
Quarter: 2010Q3

REPORT INFORMATION
  Report Type: 
  Country: None (occurrence: None)
  Receive Date: 20100716
  Receipt Date: 20071010
  Transmission Date: 20110219
  Serious: No
  Sender: FDA-Public Use
  Company Number: US-PFIZER INC-2007086135

PATIENT
  Sex: Male
  Weight: 122.7 kg

DRUGS (4)
  1. CHANTIX [Suspect]
     Indication: SMOKING CESSATION THERAPY
     Dates: start: 20071010
  2. METFORMIN HCL [Concomitant]
     Indication: BLOOD GLUCOSE INCREASED
  3. CLARINEX [Concomitant]
     Indication: HYPERSENSITIVITY
  4. CELEBREX [Concomitant]
     Indication: ARTHRITIS

REACTIONS (2)
  - MALAISE [None]
  - NAUSEA [None]
